FAERS Safety Report 16817186 (Version 1)
Quarter: 2019Q3

REPORT INFORMATION
  Report Type: Spontaneous
  Country: GB (occurrence: GB)
  Receive Date: 20190917
  Receipt Date: 20190917
  Transmission Date: 20191005
  Serious: Yes (Disabling)
  Sender: FDA-Public Use
  Company Number: GB-TEVA-2019-GB-1106897

PATIENT
  Age: 38 Year
  Sex: Female
  Weight: 64 kg

DRUGS (4)
  1. FELODIPINE. [Concomitant]
     Active Substance: FELODIPINE
     Dates: start: 20190809
  2. RAMIPRIL. [Suspect]
     Active Substance: RAMIPRIL
     Dosage: 2.5 MILLIGRAM
     Dates: start: 20190809
  3. OMEPRAZOLE. [Concomitant]
     Active Substance: OMEPRAZOLE
     Dates: start: 20190612, end: 20190710
  4. TIBOLONE [Concomitant]
     Active Substance: TIBOLONE
     Dates: start: 20190501

REACTIONS (1)
  - Abdominal pain upper [Recovered/Resolved]

NARRATIVE: CASE EVENT DATE: 20190816
